FAERS Safety Report 4363502-2 (Version None)
Quarter: 2004Q2

REPORT INFORMATION
  Report Type: 
  Country: None (occurrence: None)
  Receive Date: 20040517
  Receipt Date: 20040315
  Transmission Date: 20050107
  Serious: No
  Sender: FDA-Public Use
  Company Number: S04-USA-01606-01

PATIENT
  Sex: Male

DRUGS (5)
  1. NAMENDA [Suspect]
     Indication: DEMENTIA ALZHEIMER'S TYPE
     Dosage: 5 MG QD PO
     Route: 048
     Dates: start: 20040311
  2. EXELON [Concomitant]
  3. PARKINSON'S MEDICATION (NOS) [Concomitant]
  4. PROSTATE MEDICATION (NOS) [Concomitant]
  5. HYPERTENSION MEDICATION (NOS) [Concomitant]

REACTIONS (2)
  - DIZZINESS [None]
  - HALLUCINATION [None]
